FAERS Safety Report 17044687 (Version 2)
Quarter: 2020Q1

REPORT INFORMATION
  Report Type: Report from Study
  Country: CO (occurrence: CO)
  Receive Date: 20191118
  Receipt Date: 20200214
  Transmission Date: 20200409
  Serious: Yes (Hospitalization)
  Sender: FDA-Public Use
  Company Number: NVSC2019CO037260

PATIENT
  Sex: Female
  Weight: 56 kg

DRUGS (1)
  1. COSENTYX [Suspect]
     Active Substance: SECUKINUMAB
     Indication: PSORIATIC ARTHROPATHY
     Dosage: 300 MG, QW
     Route: 058
     Dates: start: 20190829

REACTIONS (7)
  - Tuberculosis [Recovering/Resolving]
  - Immunosuppression [Recovering/Resolving]
  - Arthralgia [Recovering/Resolving]
  - Decreased immune responsiveness [Recovering/Resolving]
  - Pneumonia [Recovering/Resolving]
  - Feeling abnormal [Recovering/Resolving]
  - Influenza [Recovering/Resolving]
